FAERS Safety Report 6405992-7 (Version None)
Quarter: 2009Q4

REPORT INFORMATION
  Report Type: 
  Country: None (occurrence: None)
  Receive Date: 20091019
  Receipt Date: 20091009
  Transmission Date: 20100525
  Serious: Yes (Death, Hospitalization)
  Sender: FDA-Public Use
  Company Number: US-BIOGENIDEC-2009BI022545

PATIENT
  Sex: Male

DRUGS (2)
  1. AVONEX [Suspect]
     Indication: MULTIPLE SCLEROSIS
     Route: 030
  2. AVONEX [Suspect]
     Route: 030

REACTIONS (5)
  - BALANCE DISORDER [None]
  - CHRONIC HEPATIC FAILURE [None]
  - DEHYDRATION [None]
  - FLUID RETENTION [None]
  - HEPATIC CIRRHOSIS [None]
